FAERS Safety Report 25621076 (Version 1)
Quarter: 2025Q3

REPORT INFORMATION
  Report Type: Spontaneous
  Country: US (occurrence: US)
  Receive Date: 20250730
  Receipt Date: 20250730
  Transmission Date: 20251021
  Serious: No
  Sender: ELI LILLY AND COMPANY
  Company Number: US-ELI_LILLY_AND_COMPANY-US202507026488

PATIENT

DRUGS (1)
  1. MOUNJARO [Suspect]
     Active Substance: TIRZEPATIDE
     Indication: Product used for unknown indication
     Route: 065

REACTIONS (9)
  - Gait disturbance [Unknown]
  - Headache [Unknown]
  - Diplopia [Unknown]
  - Eyelid ptosis [Unknown]
  - Contusion [Unknown]
  - Wrist fracture [Unknown]
  - Hand fracture [Unknown]
  - Foot fracture [Unknown]
  - Impaired gastric emptying [Recovered/Resolved]
